FAERS Safety Report 4428117-6 (Version None)
Quarter: 2004Q3

REPORT INFORMATION
  Report Type: 
  Country: None (occurrence: None)
  Receive Date: 20040726
  Receipt Date: 20040503
  Transmission Date: 20050211
  Serious: No
  Sender: FDA-Public Use
  Company Number: USA030742024

PATIENT
  Age: 80 Year
  Sex: Female
  Weight: 50 kg

DRUGS (2)
  1. FORTEO [Suspect]
     Indication: OSTEOPOROSIS
     Dosage: 20 UG/DAY
     Dates: start: 20030401
  2. VITAMIN B-12 [Concomitant]

REACTIONS (7)
  - DYSURIA [None]
  - INJECTION SITE PAIN [None]
  - MUSCULOSKELETAL DISCOMFORT [None]
  - PRURITUS [None]
  - URINARY TRACT INFECTION [None]
  - URINE ABNORMALITY [None]
  - VAGINAL HAEMORRHAGE [None]
